FAERS Safety Report 23380653 (Version 1)
Quarter: 2024Q1

REPORT INFORMATION
  Report Type: Spontaneous
  Country: FR (occurrence: FR)
  Receive Date: 20240109
  Receipt Date: 20240109
  Transmission Date: 20240409
  Serious: Yes (Hospitalization)
  Sender: FDA-Public Use
  Company Number: FR-CHEPLA-2023014048

PATIENT
  Age: 48 Year

DRUGS (10)
  1. PREDNISOLONE SODIUM METASULFOBENZOATE [Suspect]
     Active Substance: PREDNISOLONE SODIUM METAZOATE
     Indication: Product used for unknown indication
     Route: 065
  2. TROPICAMIDE [Concomitant]
     Active Substance: TROPICAMIDE
     Indication: Product used for unknown indication
     Dosage: 1 DROP SINGLE DOSE IN THE TWO EYES FOR 1 DAYS
     Route: 065
     Dates: start: 20180726
  3. KEPPRA [Concomitant]
     Active Substance: LEVETIRACETAM
     Indication: Product used for unknown indication
     Dosage: IN THE MORNING AND IN THE EVENING (BID)
     Route: 048
  4. KEPPRA [Concomitant]
     Active Substance: LEVETIRACETAM
     Indication: Product used for unknown indication
     Dosage: IN THE MORNING AND IN THE EVENING (BID)
     Route: 048
     Dates: start: 20181004
  5. PREDNISONE [Suspect]
     Active Substance: PREDNISONE
     Indication: Brain oedema
     Route: 065
  6. PREDNISONE [Suspect]
     Active Substance: PREDNISONE
     Indication: Brain oedema
     Route: 065
  7. PREDNISONE [Suspect]
     Active Substance: PREDNISONE
     Indication: Brain oedema
     Dosage: IN THE MORNING
     Route: 065
     Dates: end: 20181004
  8. PREDNISONE [Suspect]
     Active Substance: PREDNISONE
     Indication: Brain oedema
     Dosage: SINGLE DOSE
     Route: 048
     Dates: start: 20180726
  9. MEDROL [Suspect]
     Active Substance: METHYLPREDNISOLONE
     Indication: Product used for unknown indication
     Dosage: MORNING AND IN THE EVENING TO REPLACE PREDNISONE NOS
     Route: 065
     Dates: start: 20181004
  10. DAFALGAN [Concomitant]
     Active Substance: ACETAMINOPHEN
     Indication: Product used for unknown indication
     Route: 065

REACTIONS (3)
  - Asthenia [Unknown]
  - Osteoporosis [Unknown]
  - Back pain [Unknown]

NARRATIVE: CASE EVENT DATE: 20190606
